FAERS Safety Report 16665302 (Version 1)
Quarter: 2019Q3

REPORT INFORMATION
  Report Type: Spontaneous
  Country: FR (occurrence: FR)
  Receive Date: 20190803
  Receipt Date: 20190803
  Transmission Date: 20191004
  Serious: Yes (Other)
  Sender: FDA-Public Use
  Company Number: FR-MICRO LABS LIMITED-ML2019-01814

PATIENT
  Age: 74 Year
  Sex: Male

DRUGS (5)
  1. SIMVASTATIN. [Suspect]
     Active Substance: SIMVASTATIN
  2. ASPIRIN. [Suspect]
     Active Substance: ASPIRIN
  3. HYDROCORTISONE. [Concomitant]
     Active Substance: HYDROCORTISONE
  4. NIVOLUMAB [Suspect]
     Active Substance: NIVOLUMAB
     Indication: LUNG ADENOCARCINOMA
  5. WARFARIN [Concomitant]
     Active Substance: WARFARIN

REACTIONS (2)
  - Rash papular [Recovering/Resolving]
  - Lichen planus [Recovering/Resolving]
